FAERS Safety Report 10770975 (Version 1)
Quarter: 2015Q1

REPORT INFORMATION
  Report Type: Spontaneous
  Country: US (occurrence: None)
  Receive Date: 20150206
  Receipt Date: 20150206
  Transmission Date: 20150721
  Serious: No
  Sender: FDA-Public Use
  Company Number: HYP201310-000066

PATIENT
  Age: 22 Year
  Sex: Male

DRUGS (6)
  1. BICARBONATE [Concomitant]
     Active Substance: BICARBONATE ION
  2. ARGININE [Concomitant]
     Active Substance: ARGININE
  3. LORATADINE. [Concomitant]
     Active Substance: LORATADINE
  4. RAVICTI [Suspect]
     Active Substance: GLYCEROL PHENYLBUTYRATE
     Indication: UREA CYCLE ENZYME DEFICIENCY
     Route: 048
     Dates: start: 20131022
  5. CONCERTA [Concomitant]
     Active Substance: METHYLPHENIDATE HYDROCHLORIDE
  6. NEXIUM [Concomitant]
     Active Substance: ESOMEPRAZOLE MAGNESIUM

REACTIONS (1)
  - Diarrhoea [None]

NARRATIVE: CASE EVENT DATE: 201310
